FAERS Safety Report 15114992 (Version 1)
Quarter: 2018Q3

REPORT INFORMATION
  Report Type: Spontaneous
  Country: TR (occurrence: TR)
  Receive Date: 20180706
  Receipt Date: 20180706
  Transmission Date: 20181010
  Serious: Yes (Hospitalization)
  Sender: FDA-Public Use
  Company Number: PHHY2018TR034384

PATIENT
  Age: 56 Year
  Sex: Male

DRUGS (2)
  1. ETANERCEPT [Suspect]
     Active Substance: ETANERCEPT
     Indication: PRODUCT USED FOR UNKNOWN INDICATION
     Dosage: 50 MG, QW
     Route: 065
  2. INFLIXIMAB [Suspect]
     Active Substance: INFLIXIMAB
     Indication: PRODUCT USED FOR UNKNOWN INDICATION
     Dosage: 400 MG IN EVERY TWO MONTHS FOR 4 YEARS
     Route: 065

REACTIONS (10)
  - Sputum discoloured [Unknown]
  - Myalgia [Unknown]
  - Atelectasis [Unknown]
  - Pleural effusion [Unknown]
  - Dyspnoea [Unknown]
  - Pyrexia [Unknown]
  - Cough [Unknown]
  - Pericardial effusion [Unknown]
  - Lupus pleurisy [Recovered/Resolved]
  - Night sweats [Unknown]
